FAERS Safety Report 7039837-1 (Version None)
Quarter: 2010Q4

REPORT INFORMATION
  Report Type: 
  Country: None (occurrence: None)
  Receive Date: 20101012
  Receipt Date: 20100929
  Transmission Date: 20110411
  Serious: Yes (Life-Threatening, Hospitalization)
  Sender: FDA-Public Use
  Company Number: AU-ELI_LILLY_AND_COMPANY-AU201009008021

PATIENT
  Age: 45 Year
  Sex: Female

DRUGS (3)
  1. CYMBALTA [Suspect]
     Dosage: 120 MG, UNK
  2. SEROQUEL [Concomitant]
     Dosage: 200 MG, UNK
  3. MIRTAZAPINE [Concomitant]
     Dosage: 45 MG, UNK

REACTIONS (2)
  - PNEUMONIA [None]
  - SEROTONIN SYNDROME [None]
